FAERS Safety Report 4851902-3 (Version None)
Quarter: 2005Q4

REPORT INFORMATION
  Report Type: 
  Country: None (occurrence: None)
  Receive Date: 20051213
  Receipt Date: 20040129
  Transmission Date: 20060501
  Serious: Yes (Hospitalization)
  Sender: FDA-Public Use
  Company Number: JP-AVENTIS-200513619JP

PATIENT
  Age: 39 Year
  Sex: Female

DRUGS (12)
  1. ARAVA [Suspect]
     Indication: RHEUMATOID ARTHRITIS
     Route: 048
     Dates: start: 20031102, end: 20031104
  2. ARAVA [Suspect]
     Route: 048
     Dates: start: 20031105, end: 20040306
  3. ARAVA [Suspect]
     Route: 048
     Dates: start: 20040511, end: 20040608
  4. PREDONINE [Concomitant]
     Indication: RHEUMATOID ARTHRITIS
     Route: 048
     Dates: end: 20040207
  5. PREDONINE [Concomitant]
     Route: 048
     Dates: start: 20040208
  6. TAGAMET [Concomitant]
     Indication: GASTRITIS
     Route: 048
     Dates: end: 20040510
  7. TAGAMET [Concomitant]
     Indication: PROPHYLAXIS
     Route: 048
     Dates: end: 20040510
  8. IMURAN [Concomitant]
     Indication: RHEUMATOID ARTHRITIS
     Route: 048
     Dates: end: 20031101
  9. VOLTAREN [Concomitant]
     Indication: RHEUMATOID ARTHRITIS
     Dosage: DOSE: 2 TABLETS/DAY
     Route: 048
     Dates: end: 20040206
  10. VOLTAREN [Concomitant]
     Dosage: DOSE: 2 TABLETS/DAY
     Route: 048
     Dates: start: 20040307, end: 20040510
  11. PL GRAN. [Concomitant]
     Indication: NASOPHARYNGITIS
     Route: 048
     Dates: start: 20031011, end: 20031018
  12. CATLEP [Concomitant]
     Indication: RHEUMATOID ARTHRITIS
     Dates: end: 20040206

REACTIONS (3)
  - DIARRHOEA [None]
  - HAEMORRHAGIC OVARIAN CYST [None]
  - PRURITUS [None]
